FAERS Safety Report 17962284 (Version 2)
Quarter: 2020Q3

REPORT INFORMATION
  Report Type: Spontaneous
  Country: FR (occurrence: FR)
  Receive Date: 20200630
  Receipt Date: 20200728
  Transmission Date: 20201103
  Serious: Yes (Other)
  Sender: FDA-Public Use
  Company Number: FR-CELGENEUS-FRA-20200605562

PATIENT
  Sex: Male

DRUGS (2)
  1. IDHIFA [Suspect]
     Active Substance: ENASIDENIB MESYLATE
     Indication: ACUTE MYELOID LEUKAEMIA
     Dosage: 100 MILLIGRAM
     Route: 048
     Dates: start: 20200318
  2. IDHIFA [Suspect]
     Active Substance: ENASIDENIB MESYLATE
     Dosage: 50 MILLIGRAM
     Route: 048
     Dates: start: 20200515

REACTIONS (5)
  - Haemoglobin abnormal [Unknown]
  - Hepatotoxicity [Unknown]
  - Platelet disorder [Unknown]
  - Laboratory test abnormal [Unknown]
  - Neutrophil count abnormal [Unknown]
